FAERS Safety Report 6598029-0 (Version None)
Quarter: 2010Q1

REPORT INFORMATION
  Report Type: 
  Country: None (occurrence: None)
  Receive Date: 20100216
  Receipt Date: 20100128
  Transmission Date: 20100710
  Serious: Yes (Hospitalization)
  Sender: FDA-Public Use
  Company Number: 2010AL000694

PATIENT
  Age: 40 Year
  Sex: Male

DRUGS (5)
  1. MIRTAZAPINE [Suspect]
     Indication: DEPRESSION
     Dosage: 30 MG, PO
     Route: 048
     Dates: start: 20091101, end: 20091231
  2. ANTABUSE [Concomitant]
  3. FLUOXETINE [Concomitant]
  4. DISULFIRAM [Concomitant]
  5. ACAMPROSATE CALCIUM [Concomitant]

REACTIONS (6)
  - AGITATION [None]
  - CONDITION AGGRAVATED [None]
  - DISORIENTATION [None]
  - HALLUCINATIONS, MIXED [None]
  - PANIC ATTACK [None]
  - PARANOIA [None]
